FAERS Safety Report 6677504-4 (Version None)
Quarter: 2010Q2

REPORT INFORMATION
  Report Type: 
  Country: None (occurrence: None)
  Receive Date: 20100412
  Receipt Date: 20100405
  Transmission Date: 20101027
  Serious: Yes (Other)
  Sender: FDA-Public Use
  Company Number: D0066445A

PATIENT
  Sex: Male
  Weight: 90 kg

DRUGS (2)
  1. ATMADISC [Suspect]
     Indication: ASTHMA
     Route: 055
     Dates: start: 20030101
  2. SALBUTAMOL [Concomitant]
     Route: 055

REACTIONS (4)
  - ASTHMA [None]
  - CONDITION AGGRAVATED [None]
  - DRUG INEFFECTIVE [None]
  - PRODUCT QUALITY ISSUE [None]
